FAERS Safety Report 4510685-7 (Version None)
Quarter: 2004Q4

REPORT INFORMATION
  Report Type: 
  Country: None (occurrence: None)
  Receive Date: 20041123
  Receipt Date: 20041118
  Transmission Date: 20050328
  Serious: Yes (Hospitalization, Other)
  Sender: FDA-Public Use
  Company Number: 04-11-1623

PATIENT
  Age: 39 Year
  Sex: Male

DRUGS (1)
  1. CLOZAPINE [Suspect]
     Indication: SCHIZOAFFECTIVE DISORDER
     Dosage: 400-600MG QD ORAL
     Route: 048
     Dates: start: 20010501, end: 20041101

REACTIONS (3)
  - CONVULSION [None]
  - SPINAL FRACTURE [None]
  - WHITE BLOOD CELL COUNT DECREASED [None]
